FAERS Safety Report 25347880 (Version 1)
Quarter: 2025Q2

REPORT INFORMATION
  Report Type: Spontaneous
  Country: US (occurrence: US)
  Receive Date: 20250522
  Receipt Date: 20250522
  Transmission Date: 20250717
  Serious: No
  Sender: ACERUS PHARMACEUTICALS CORPORATION
  Company Number: US-ACERUSPHRM-2025-US-000033

PATIENT
  Sex: Male
  Weight: 76.66 kg

DRUGS (1)
  1. NATESTO [Suspect]
     Active Substance: TESTOSTERONE
     Indication: Congenital hypogonadotropic hypogonadism
     Route: 065

REACTIONS (2)
  - Product use issue [Unknown]
  - Obstructive sleep apnoea syndrome [Recovering/Resolving]
